FAERS Safety Report 9219353 (Version 1)
Quarter: 2013Q2

REPORT INFORMATION
  Report Type: Spontaneous
  Country: FR (occurrence: FR)
  Receive Date: 20130409
  Receipt Date: 20130409
  Transmission Date: 20140414
  Serious: Yes (Death)
  Sender: FDA-Public Use
  Company Number: FR-B.I. PHARMACEUTICALS,INC./RIDGEFIELD-2013-BI-09703YA

PATIENT
  Sex: Female

DRUGS (1)
  1. TAMSULOSINA [Suspect]
     Indication: MICTURITION DISORDER
     Route: 048
     Dates: start: 2007

REACTIONS (3)
  - Death [Fatal]
  - Off label use [Unknown]
  - Off label use [Unknown]
